FAERS Safety Report 4365771-1 (Version None)
Quarter: 2004Q2

REPORT INFORMATION
  Report Type: 
  Country: None (occurrence: None)
  Receive Date: 20040520
  Receipt Date: 20040511
  Transmission Date: 20050107
  Serious: Yes (Hospitalization)
  Sender: FDA-Public Use
  Company Number: 2004CG00917

PATIENT
  Age: 92 Year
  Sex: Female

DRUGS (6)
  1. MOPRAL [Suspect]
     Dosage: 20 MG DAILY PO
     Route: 048
     Dates: start: 20000218, end: 20000305
  2. NITRIDERM TTS [Suspect]
     Dosage: 5 MG DAILY PO
     Route: 048
     Dates: start: 20000218, end: 20000309
  3. CORTANCYL [Concomitant]
  4. PRAXILENE [Concomitant]
  5. SANDOCAL [Concomitant]
  6. DEDROGYL [Concomitant]

REACTIONS (4)
  - DIARRHOEA HAEMORRHAGIC [None]
  - ENTEROCOLITIS HAEMORRHAGIC [None]
  - INFLAMMATION [None]
  - THROMBOCYTOPENIA [None]
